FAERS Safety Report 20704002 (Version 1)
Quarter: 2022Q2

REPORT INFORMATION
  Report Type: Spontaneous
  Country: IT (occurrence: IT)
  Receive Date: 20220413
  Receipt Date: 20220413
  Transmission Date: 20220720
  Serious: Yes (Hospitalization, Other)
  Sender: FDA-Public Use
  Company Number: IT-SA-2022SA124272

PATIENT
  Age: 36 Year
  Sex: Female

DRUGS (4)
  1. OXALIPLATIN [Suspect]
     Active Substance: OXALIPLATIN
     Indication: Adenocarcinoma of colon
     Dosage: 85 MG/M2, QCY (FOLFOX4 REGIMEN)
     Dates: start: 200605
  2. LEUCOVORIN [Suspect]
     Active Substance: LEUCOVORIN
     Indication: Adenocarcinoma of colon
     Dosage: 100 MG/M2, QCY, FOLFOX4 REGIMEN
     Dates: start: 200605
  3. FLUOROURACIL [Suspect]
     Active Substance: FLUOROURACIL
     Indication: Adenocarcinoma of colon
     Dosage: 400 MG/M2 BOLUS, FOLFOX4 REGIMEN
     Dates: start: 200605
  4. FLOXURIDINE [Concomitant]
     Active Substance: FLOXURIDINE
     Indication: Colorectal cancer metastatic
     Dosage: INTRA-ARTERIAL (LIVER)
     Route: 013
     Dates: start: 200512

REACTIONS (12)
  - Haemolysis [Recovering/Resolving]
  - Haemolytic anaemia [Recovering/Resolving]
  - Haemoglobinuria [Recovering/Resolving]
  - Chromaturia [Recovering/Resolving]
  - Coombs test positive [Recovering/Resolving]
  - Thrombocytopenia [Recovered/Resolved]
  - Acute kidney injury [Recovering/Resolving]
  - Hypertension [Recovering/Resolving]
  - Proteinuria [Recovering/Resolving]
  - Oedema peripheral [Recovering/Resolving]
  - Weight increased [Recovering/Resolving]
  - Leukocytosis [Recovering/Resolving]

NARRATIVE: CASE EVENT DATE: 20060628
